FAERS Safety Report 7410348-4 (Version None)
Quarter: 2011Q2

REPORT INFORMATION
  Report Type: 
  Country: None (occurrence: None)
  Receive Date: 20110412
  Receipt Date: 20110331
  Transmission Date: 20111010
  Serious: Yes (Hospitalization, Other)
  Sender: FDA-Public Use
  Company Number: US-WATSON-2011-04330

PATIENT

DRUGS (1)
  1. METOPROLOL SUCCINATE [Suspect]
     Indication: PRODUCT USED FOR UNKNOWN INDICATION
     Dosage: 50 MG, UNKNOWN
     Route: 048
     Dates: start: 19931201, end: 20090101

REACTIONS (10)
  - CONDUCTION DISORDER [None]
  - SLEEP DISORDER [None]
  - ACTIVITIES OF DAILY LIVING IMPAIRED [None]
  - PULSE ABNORMAL [None]
  - FATIGUE [None]
  - BLOOD PRESSURE ABNORMAL [None]
  - CEREBROVASCULAR ACCIDENT [None]
  - CARDIAC FAILURE [None]
  - HEART RATE DECREASED [None]
  - DYSPNOEA [None]
